FAERS Safety Report 9797876 (Version 3)
Quarter: 2014Q1

REPORT INFORMATION
  Report Type: Spontaneous
  Country: US (occurrence: US)
  Receive Date: 20140106
  Receipt Date: 20140224
  Transmission Date: 20141002
  Serious: Yes (Other)
  Sender: FDA-Public Use
  Company Number: PHEH2013US026623

PATIENT
  Sex: Female

DRUGS (6)
  1. EXELON PATCH [Suspect]
     Indication: MEMORY IMPAIRMENT
     Dosage: 9.5 MG (10 CM2), UNK
     Route: 062
     Dates: start: 2010
  2. NAMENDA [Concomitant]
     Dosage: 28 MG, UNK
  3. CONCERTA [Concomitant]
     Dosage: 36 MG, UNK
  4. OMEGA 3 [Concomitant]
     Dosage: UNK UKN, UNK
  5. FISH OIL [Concomitant]
     Dosage: UNK UKN, UNK
  6. ANTIBIOTICS [Concomitant]
     Dosage: UNK UKN, UNK

REACTIONS (11)
  - Sepsis [Recovered/Resolved]
  - Coma [Recovered/Resolved]
  - Cardiac arrest [Recovered/Resolved]
  - Infection [Recovered/Resolved]
  - Myalgia [Recovered/Resolved]
  - Seborrhoea [Recovered/Resolved]
  - Skin irritation [Recovered/Resolved]
  - Amnesia [Recovered/Resolved]
  - Hyperhidrosis [Recovered/Resolved]
  - Weight decreased [Recovered/Resolved]
  - Application site irritation [Recovered/Resolved]
